FAERS Safety Report 4327841-3 (Version None)
Quarter: 2004Q1

REPORT INFORMATION
  Report Type: 
  Country: None (occurrence: None)
  Receive Date: 20040325
  Receipt Date: 20040311
  Transmission Date: 20041129
  Serious: Yes (Hospitalization)
  Sender: FDA-Public Use
  Company Number: FR-JNJFOC-20040302739

PATIENT
  Age: 40 Year
  Sex: Male
  Weight: 93 kg

DRUGS (5)
  1. REMICADE [Suspect]
     Indication: CROHN'S DISEASE
     Dosage: 450 MG, INTRAVENOUS
     Route: 042
     Dates: start: 20030630, end: 20031014
  2. PARIET (RABEPRAZOLE SODIUM) [Concomitant]
  3. AZATHIOPRINE [Concomitant]
  4. PENTASA [Concomitant]
  5. PREDNISONE TAB [Concomitant]

REACTIONS (1)
  - LUPUS-LIKE SYNDROME [None]
